FAERS Safety Report 8590601-1 (Version None)
Quarter: 2012Q3

REPORT INFORMATION
  Report Type: 
  Country: None (occurrence: None)
  Receive Date: 20120813
  Receipt Date: 20120809
  Transmission Date: 20120928
  Serious: Yes (Hospitalization)
  Sender: FDA-Public Use
  Company Number: FR-TEVA-351905USA

PATIENT
  Sex: Male
  Weight: 96 kg

DRUGS (7)
  1. TREANDA [Suspect]
     Indication: MANTLE CELL LYMPHOMA
     Dosage: UID/QD
     Route: 042
     Dates: start: 20120709
  2. VELCADE [Suspect]
     Indication: MANTLE CELL LYMPHOMA
     Dosage: UID/QD
     Route: 058
     Dates: start: 20120709
  3. MABTHERA [Suspect]
     Indication: MANTLE CELL LYMPHOMA
     Dosage: UID/QD
     Route: 042
     Dates: start: 20120709
  4. LYRICA [Concomitant]
     Dosage: 25 MILLIGRAM DAILY;
     Route: 048
     Dates: start: 20120709
  5. GLICLAZIDE [Concomitant]
     Dosage: 30 MILLIGRAM DAILY;
     Route: 048
  6. PLAVIX [Concomitant]
     Dosage: 75 MILLIGRAM DAILY;
     Route: 048
  7. PRAZOSIN HCL [Concomitant]
     Route: 048

REACTIONS (1)
  - ILEUS [None]
